FAERS Safety Report 14860478 (Version 1)
Quarter: 2018Q2

REPORT INFORMATION
  Report Type: Not Available
  Country: US (occurrence: US)
  Receive Date: 20180508
  Receipt Date: 20180508
  Transmission Date: 20180711
  Serious: No
  Sender: FDA-Public Use
  Company Number: US-FOUNDATIONCONSUMERHC-2018-US-002375

PATIENT
  Age: 41 Year
  Sex: Female
  Weight: 61.24 kg

DRUGS (4)
  1. UNSPECIFIED FISH OIL [Concomitant]
  2. PLAN B ONE-STEP [Suspect]
     Active Substance: LEVONORGESTREL
     Dosage: 1 TAB PO
     Route: 048
     Dates: start: 20171223, end: 20171223
  3. UNSPECIFIED VITAMIN C [Concomitant]
  4. UNSPECIFIED MULTIVITAMIN [Concomitant]

REACTIONS (4)
  - Fatigue [Recovered/Resolved]
  - Menstrual disorder [Not Recovered/Not Resolved]
  - Nausea [Recovered/Resolved]
  - Vomiting [Recovered/Resolved]

NARRATIVE: CASE EVENT DATE: 20171223
